FAERS Safety Report 9362292 (Version 2)
Quarter: 2013Q3

REPORT INFORMATION
  Report Type: Spontaneous
  Country: JP (occurrence: JP)
  Receive Date: 20130622
  Receipt Date: 20130701
  Transmission Date: 20140515
  Serious: Yes (Other)
  Sender: FDA-Public Use
  Company Number: JP-ACCORD-018169

PATIENT
  Age: 77 Year
  Sex: Female

DRUGS (5)
  1. PRAVASTATIN SODIUM [Concomitant]
     Route: 048
  2. TELMISARTAN [Concomitant]
     Route: 048
  3. MEMANTINE [Suspect]
     Indication: DEMENTIA ALZHEIMER^S TYPE
  4. DONEPEZIL [Suspect]
     Indication: DEMENTIA ALZHEIMER^S TYPE
     Route: 048
  5. NIFEDIPINE [Concomitant]
     Route: 048

REACTIONS (3)
  - Electrocardiogram PR prolongation [Recovered/Resolved]
  - Condition aggravated [Recovered/Resolved]
  - Bradycardia [Unknown]
